FAERS Safety Report 8012711-X (Version None)
Quarter: 2011Q4

REPORT INFORMATION
  Report Type: 
  Country: None (occurrence: None)
  Receive Date: 20111229
  Receipt Date: 20110527
  Transmission Date: 20120403
  Serious: Yes (Hospitalization)
  Sender: FDA-Public Use
  Company Number: US-MYLANLABS-2011S1009142

PATIENT
  Age: 71 Year
  Sex: Male
  Weight: 83.92 kg

DRUGS (9)
  1. ASPIRIN [Concomitant]
     Route: 048
  2. CARDIO OMEGA 3 [Concomitant]
  3. CITALOPRAM HYDROBROMIDE [Suspect]
     Route: 048
     Dates: start: 20110423, end: 20110427
  4. SIMVASTATIN [Concomitant]
     Indication: BLOOD CHOLESTEROL
     Route: 048
  5. DILTIAZEM HCL [Concomitant]
     Route: 048
  6. ENALAPRIL MALEATE AND HYDROCHLOROTHIAZIDE [Concomitant]
     Dosage: 10MG/25MG
     Route: 048
  7. INDOMETHACIN [Concomitant]
     Route: 048
  8. CITALOPRAM HYDROBROMIDE [Suspect]
     Indication: DEPRESSION
     Route: 048
     Dates: start: 20110418, end: 20110422
  9. METOPROLOL SUCCINATE [Concomitant]
     Indication: BLOOD PRESSURE

REACTIONS (2)
  - HYPERHIDROSIS [None]
  - MANIA [None]
